FAERS Safety Report 17494333 (Version 1)
Quarter: 2020Q1

REPORT INFORMATION
  Report Type: Spontaneous
  Country: US (occurrence: US)
  Receive Date: 20200304
  Receipt Date: 20200304
  Transmission Date: 20200409
  Serious: No
  Sender: FDA-Public Use
  Company Number: NVSC2020US060961

PATIENT
  Age: 38 Year
  Sex: Male
  Weight: 52.6 kg

DRUGS (13)
  1. PREDNISONE. [Suspect]
     Active Substance: PREDNISONE
     Indication: PANCREAS TRANSPLANT
  2. LAMIVUDINE. [Concomitant]
     Active Substance: LAMIVUDINE
     Indication: HIV INFECTION
     Dosage: UNK
     Route: 065
  3. TACROLIMUS. [Suspect]
     Active Substance: TACROLIMUS
     Indication: IMMUNOSUPPRESSANT DRUG THERAPY
     Dosage: UNK (TROUGH GOAL WAS 8-10 NG/ML FOR THE FIRST 1 YEAR, THEN 5-8 NG/ML FOR THE LONG TERM)
     Route: 065
  4. PREDNISONE. [Suspect]
     Active Substance: PREDNISONE
     Indication: RENAL TRANSPLANT
  5. DOLUTEGRAVIR [Concomitant]
     Active Substance: DOLUTEGRAVIR
     Indication: HIV INFECTION
     Dosage: UNK
     Route: 065
  6. MYCOPHENOLATE MOFETIL. [Suspect]
     Active Substance: MYCOPHENOLATE MOFETIL
     Indication: IMMUNOSUPPRESSANT DRUG THERAPY
     Dosage: UNK (REDUCED TO 50 PERCENT)
     Route: 065
  7. MYCOPHENOLATE MOFETIL. [Suspect]
     Active Substance: MYCOPHENOLATE MOFETIL
     Indication: PANCREAS TRANSPLANT
  8. PREDNISONE. [Suspect]
     Active Substance: PREDNISONE
     Indication: IMMUNOSUPPRESSANT DRUG THERAPY
     Dosage: 5 MG, QD
     Route: 065
  9. TACROLIMUS. [Suspect]
     Active Substance: TACROLIMUS
     Indication: PANCREAS TRANSPLANT
  10. TACROLIMUS. [Suspect]
     Active Substance: TACROLIMUS
     Indication: RENAL TRANSPLANT
  11. ABACAVIR. [Concomitant]
     Active Substance: ABACAVIR
     Indication: HIV INFECTION
     Dosage: UNK
     Route: 065
  12. MYCOPHENOLATE MOFETIL. [Suspect]
     Active Substance: MYCOPHENOLATE MOFETIL
     Indication: RENAL TRANSPLANT
  13. RALTEGRAVIR. [Concomitant]
     Active Substance: RALTEGRAVIR
     Indication: HIV INFECTION
     Dosage: UNK
     Route: 065

REACTIONS (2)
  - BK virus infection [Unknown]
  - Product use in unapproved indication [Unknown]
